FAERS Safety Report 19704162 (Version 4)
Quarter: 2022Q2

REPORT INFORMATION
  Report Type: Spontaneous
  Country: DE (occurrence: DE)
  Receive Date: 20210816
  Receipt Date: 20220422
  Transmission Date: 20220721
  Serious: Yes (Other)
  Sender: FDA-Public Use
  Company Number: DE-NOVARTISPH-NVSC2021DE182525

PATIENT
  Age: 71 Year
  Sex: Male

DRUGS (6)
  1. CARBOPLATIN [Suspect]
     Active Substance: CARBOPLATIN
     Indication: Non-small cell lung cancer
     Dosage: 427 MG, Q3W 9427 MILLIGRAM, QW3X2)
     Route: 042
     Dates: start: 20210531, end: 20210621
  2. NIVOLUMAB [Suspect]
     Active Substance: NIVOLUMAB
     Indication: Non-small cell lung cancer
     Dosage: 360 MG, Q3W
     Route: 042
     Dates: start: 20210531
  3. IPILIMUMAB [Suspect]
     Active Substance: IPILIMUMAB
     Indication: Non-small cell lung cancer
     Dosage: 77 MILLIGRAM, Q6WK
     Route: 042
     Dates: start: 20210531
  4. YERVOY [Suspect]
     Active Substance: IPILIMUMAB
     Indication: Non-small cell lung cancer
     Dosage: 77 MILLIGRAM, Q6WK
     Route: 042
     Dates: start: 20210531
  5. OPDIVO [Suspect]
     Active Substance: NIVOLUMAB
     Indication: Non-small cell lung cancer
     Dosage: 360 MILLIGRAM, Q3WK
     Route: 042
     Dates: start: 20210531
  6. THIAMAZOL ARISTO [Concomitant]
     Indication: Product used for unknown indication
     Dosage: 10 MG, BID (10MG,TAB 100 ST N3|2-0-2)
     Route: 065
     Dates: start: 20210728

REACTIONS (4)
  - Central hypothyroidism [Not Recovered/Not Resolved]
  - Renal impairment [Unknown]
  - Blood creatinine increased [Unknown]
  - Gamma-glutamyltransferase increased [Unknown]

NARRATIVE: CASE EVENT DATE: 20210705
